FAERS Safety Report 13403036 (Version 1)
Quarter: 2017Q2

REPORT INFORMATION
  Report Type: Spontaneous
  Country: US (occurrence: US)
  Receive Date: 20170404
  Receipt Date: 20170404
  Transmission Date: 20170830
  Serious: Yes (Other)
  Sender: FDA-Public Use
  Company Number: US-ROCHE-1791876

PATIENT
  Sex: Male

DRUGS (4)
  1. TETRAVISC [Concomitant]
     Active Substance: TETRACAINE HYDROCHLORIDE
     Indication: PAIN
     Route: 065
  2. BETADINE [Concomitant]
     Active Substance: POVIDONE-IODINE
     Indication: PAIN
     Route: 065
  3. AVASTIN [Suspect]
     Active Substance: BEVACIZUMAB
     Indication: MACULAR OEDEMA
     Route: 065
     Dates: start: 20160419
  4. COUMADIN [Concomitant]
     Active Substance: WARFARIN SODIUM

REACTIONS (4)
  - Pain [Unknown]
  - Cerebrovascular accident [Unknown]
  - Off label use [Unknown]
  - Epistaxis [Recovered/Resolved with Sequelae]
